FAERS Safety Report 9387371 (Version 1)
Quarter: 2013Q3

REPORT INFORMATION
  Report Type: Spontaneous
  Country: US (occurrence: US)
  Receive Date: 20130708
  Receipt Date: 20130708
  Transmission Date: 20140515
  Serious: Yes (Other)
  Sender: FDA-Public Use
  Company Number: US-GLAXOSMITHKLINE-A1020065A

PATIENT
  Age: 44 Year
  Sex: Male
  Weight: 98.2 kg

DRUGS (1)
  1. POTIGA [Suspect]
     Indication: CONVULSION
     Dosage: 300MG THREE TIMES PER DAY
     Route: 048
     Dates: start: 20120518

REACTIONS (2)
  - Urinary retention [Not Recovered/Not Resolved]
  - Dysuria [Recovering/Resolving]
